FAERS Safety Report 5354219-6 (Version None)
Quarter: 2007Q2

REPORT INFORMATION
  Report Type: 
  Country: None (occurrence: None)
  Receive Date: 20070612
  Receipt Date: 20070530
  Transmission Date: 20071010
  Serious: Yes (Other)
  Sender: FDA-Public Use
  Company Number: US-ELI_LILLY_AND_COMPANY-US200705007559

PATIENT
  Sex: Male

DRUGS (3)
  1. HUMALOG [Suspect]
     Indication: DIABETES MELLITUS
     Dates: start: 20061201, end: 20070515
  2. HUMALOG [Suspect]
     Dosage: 85 U, UNK
     Dates: start: 20070515
  3. LANTUS [Concomitant]
     Dosage: 20 U, DAILY (1/D)

REACTIONS (6)
  - BLINDNESS TRANSIENT [None]
  - CATARACT [None]
  - CORNEAL DISORDER [None]
  - HERPES VIRUS INFECTION [None]
  - HERPES ZOSTER [None]
  - VISION BLURRED [None]
